FAERS Safety Report 4804031-9 (Version None)
Quarter: 2005Q4

REPORT INFORMATION
  Report Type: 
  Country: None (occurrence: None)
  Receive Date: 20051018
  Receipt Date: 20051018
  Transmission Date: 20060501
  Serious: Yes (Hospitalization)
  Sender: FDA-Public Use
  Company Number: None

PATIENT
  Age: 71 Year
  Sex: Female
  Weight: 89 kg

DRUGS (11)
  1. DEPODUR [Suspect]
     Indication: KNEE ARTHROPLASTY
     Dosage: 10 MG EPIDURAL INJ
     Route: 008
     Dates: start: 20050802
  2. ASPIRIN [Concomitant]
  3. PLAVIX [Concomitant]
  4. ZOCOR [Concomitant]
  5. IMDUR [Concomitant]
  6. LISINOPRIL [Concomitant]
  7. COUMADIN [Concomitant]
  8. VANCOMYCIN [Concomitant]
  9. INSULIN [Concomitant]
  10. ULTRAM [Concomitant]
  11. SOLU-MEDROL [Concomitant]

REACTIONS (4)
  - DEPRESSED LEVEL OF CONSCIOUSNESS [None]
  - HYPOXIA [None]
  - NAUSEA [None]
  - WHEEZING [None]
